FAERS Safety Report 8170408-X (Version None)
Quarter: 2012Q1

REPORT INFORMATION
  Report Type: 
  Country: None (occurrence: None)
  Receive Date: 20120112
  Receipt Date: 20110201
  Transmission Date: 20120608
  Serious: Yes (Hospitalization)
  Sender: FDA-Public Use
  Company Number: US-JNJFOC-2011003110

PATIENT
  Age: 60 Year
  Sex: Male
  Weight: 106.6 kg

DRUGS (3)
  1. MULTIVITAMINS (MULTIVITAMINS) UNKNOWN [Concomitant]
  2. ACETYLSALICYLIC ACID SRT [Concomitant]
  3. ROGAINE [Suspect]
     Indication: ALOPECIA
     Dosage: DAILY DOSE TEXT: HALF CAPFUL TWICE DAILY
     Dates: start: 20101125, end: 20101201

REACTIONS (2)
  - CHEST PAIN [None]
  - HEART RATE INCREASED [None]
